FAERS Safety Report 15322406 (Version 4)
Quarter: 2018Q4

REPORT INFORMATION
  Report Type: Report from Study
  Country: PE (occurrence: PE)
  Receive Date: 20180827
  Receipt Date: 20181008
  Transmission Date: 20190204
  Serious: Yes (Hospitalization)
  Sender: FDA-Public Use
  Company Number: PE-SA-2018SA227637

PATIENT
  Age: 39 Year
  Sex: Female

DRUGS (1)
  1. IMIGLUCERASE [Suspect]
     Active Substance: IMIGLUCERASE
     Indication: GAUCHER^S DISEASE
     Dosage: 2800 IU, QOW
     Route: 041
     Dates: start: 20170307

REACTIONS (9)
  - Abdominal pain [Recovering/Resolving]
  - Nausea [Recovered/Resolved]
  - Discomfort [Recovering/Resolving]
  - Urinary tract infection [Recovered/Resolved]
  - Malaise [Not Recovered/Not Resolved]
  - Ocular icterus [Recovered/Resolved]
  - Feeling abnormal [Unknown]
  - Cholelithiasis [Recovering/Resolving]
  - Biliary colic [Recovering/Resolving]

NARRATIVE: CASE EVENT DATE: 2018
